FAERS Safety Report 19126063 (Version 1)
Quarter: 2021Q2

REPORT INFORMATION
  Report Type: Spontaneous
  Country: FR (occurrence: FR)
  Receive Date: 20210413
  Receipt Date: 20210413
  Transmission Date: 20210717
  Serious: Yes (Hospitalization)
  Sender: FDA-Public Use
  Company Number: NVSC2021FR074739

PATIENT
  Age: 32 Year
  Sex: Female

DRUGS (2)
  1. RITALINE [Suspect]
     Active Substance: METHYLPHENIDATE HYDROCHLORIDE
     Indication: DRUG USE DISORDER
     Dosage: UNK
     Route: 042
     Dates: start: 202007
  2. LYRICA [Suspect]
     Active Substance: PREGABALIN
     Indication: DRUG USE DISORDER
     Dosage: UNK
     Route: 042
     Dates: start: 202007

REACTIONS (2)
  - Drug use disorder [Not Recovered/Not Resolved]
  - Cellulitis [Recovered/Resolved]

NARRATIVE: CASE EVENT DATE: 2020
